FAERS Safety Report 6772779-5 (Version None)
Quarter: 2010Q2

REPORT INFORMATION
  Report Type: 
  Country: None (occurrence: None)
  Receive Date: 20100616
  Receipt Date: 20100603
  Transmission Date: 20101027
  Serious: Yes (Hospitalization)
  Sender: FDA-Public Use
  Company Number: MX-ELI_LILLY_AND_COMPANY-MX201005003279

PATIENT
  Age: 9 Year
  Sex: Male

DRUGS (2)
  1. STRATTERA [Suspect]
     Indication: ATTENTION DEFICIT/HYPERACTIVITY DISORDER
     Dosage: UNK , UNKNOWN
     Route: 065
     Dates: start: 20100401, end: 20100501
  2. STRATTERA [Suspect]
     Dosage: 25 MG, UNKNOWN
     Route: 065
     Dates: start: 20100101, end: 20100501

REACTIONS (1)
  - GASTRITIS [None]
